FAERS Safety Report 23742848 (Version 1)
Quarter: 2024Q2

REPORT INFORMATION
  Report Type: Spontaneous
  Country: US (occurrence: None)
  Receive Date: 20240412
  Receipt Date: 20240412
  Transmission Date: 20240715
  Serious: Yes (Other)
  Sender: FDA-Public Use
  Company Number: None

PATIENT
  Age: 38 Year
  Sex: Female
  Weight: 112.5 kg

DRUGS (8)
  1. TRINTELLIX [Suspect]
     Active Substance: VORTIOXETINE HYDROBROMIDE
     Indication: Antidepressant therapy
     Dosage: 1 TABLET ORAL
     Route: 048
     Dates: start: 20240206, end: 20240212
  2. TOMATO [Suspect]
     Active Substance: TOMATO
     Indication: Product used for unknown indication
  3. COUMADIN [Concomitant]
     Active Substance: WARFARIN SODIUM
  4. BUSPIRONE HCL [Concomitant]
     Active Substance: BUSPIRONE HYDROCHLORIDE
  5. Adderall (amphet/dext) [Concomitant]
  6. VITAMIN D [Concomitant]
     Active Substance: VITAMIN D NOS
  7. CETIRIZINE HYDROCHLORIDE [Concomitant]
     Active Substance: CETIRIZINE HYDROCHLORIDE
  8. VITAMINS [Concomitant]
     Active Substance: VITAMINS

REACTIONS (17)
  - Sinus congestion [None]
  - Sinusitis [None]
  - Abdominal distension [None]
  - Inflammation [None]
  - Peripheral swelling [None]
  - Chest discomfort [None]
  - Dyspnoea [None]
  - Hypoaesthesia oral [None]
  - Hypoaesthesia oral [None]
  - Hypoaesthesia [None]
  - Anxiety [None]
  - Insomnia [None]
  - Hypersensitivity [None]
  - Food allergy [None]
  - Swelling face [None]
  - Peripheral swelling [None]
  - Peripheral swelling [None]

NARRATIVE: CASE EVENT DATE: 20240212
